FAERS Safety Report 17583567 (Version 3)
Quarter: 2020Q4

REPORT INFORMATION
  Report Type: Spontaneous
  Country: US (occurrence: US)
  Receive Date: 20200326
  Receipt Date: 20201013
  Transmission Date: 20210113
  Serious: Yes (Other)
  Sender: FDA-Public Use
  Company Number: US-INTERCEPT-PM2020000806

PATIENT
  Age: 58 Year
  Sex: Female
  Weight: 77 kg

DRUGS (19)
  1. XANAX [Concomitant]
     Active Substance: ALPRAZOLAM
  2. CYANOCOBALAMIN. [Concomitant]
     Active Substance: CYANOCOBALAMIN
     Route: 048
  3. ADVIL (MEFENAMIC ACID) [Concomitant]
     Active Substance: MEFENAMIC ACID
     Dosage: UNK
  4. LEXAPRO [Concomitant]
     Active Substance: ESCITALOPRAM OXALATE
     Route: 048
  5. ERGOCALCIFEROL. [Concomitant]
     Active Substance: ERGOCALCIFEROL
  6. ACTIGALL [Suspect]
     Active Substance: URSODIOL
     Indication: PRIMARY BILIARY CHOLANGITIS
     Dosage: 250 MG, TID
     Route: 048
     Dates: end: 20200325
  7. QUESTRAN [Concomitant]
     Active Substance: CHOLESTYRAMINE
     Dosage: 4 G, UNK
  8. NEURONTIN [Concomitant]
     Active Substance: GABAPENTIN
     Dosage: 300 MG, PRN
     Route: 048
  9. MOTRIN [Concomitant]
     Active Substance: IBUPROFEN
  10. VITAMIN A + E [Concomitant]
  11. OCALIVA [Suspect]
     Active Substance: OBETICHOLIC ACID
     Indication: PRIMARY BILIARY CHOLANGITIS
     Dosage: 10 MG, QD
     Route: 048
     Dates: start: 201609
  12. CALCIUM [Concomitant]
     Active Substance: CALCIUM
     Dosage: 400 MG, TID
     Route: 048
  13. MULTIVITAMIN                       /00097801/ [Concomitant]
     Active Substance: VITAMINS
     Route: 048
  14. VITAMIN E [Concomitant]
     Active Substance: .ALPHA.-TOCOPHEROL
  15. AMITRIPTYLINE [Concomitant]
     Active Substance: AMITRIPTYLINE
     Dosage: UNK
  16. OCALIVA [Suspect]
     Active Substance: OBETICHOLIC ACID
     Dosage: 10 MG, QD
     Route: 048
  17. ACTIGALL [Suspect]
     Active Substance: URSODIOL
     Dosage: 500 MG, BID
     Route: 048
     Dates: start: 20200325
  18. ELAVIL [Concomitant]
     Active Substance: AMITRIPTYLINE HYDROCHLORIDE
     Route: 048
  19. ZOFRAN [Concomitant]
     Active Substance: ONDANSETRON HYDROCHLORIDE

REACTIONS (25)
  - Disease progression [Unknown]
  - Hepatic fibrosis [Not Recovered/Not Resolved]
  - Nausea [Unknown]
  - Haemoglobin decreased [Unknown]
  - Drug hypersensitivity [Unknown]
  - Transferrin saturation decreased [Unknown]
  - Blood sodium decreased [Recovered/Resolved]
  - Craniocerebral injury [Unknown]
  - Cognitive disorder [Not Recovered/Not Resolved]
  - Alanine aminotransferase increased [Unknown]
  - Drug ineffective [Unknown]
  - Dysphagia [Unknown]
  - Choking [Unknown]
  - Haematocrit decreased [Unknown]
  - Blood alkaline phosphatase increased [Unknown]
  - Product prescribing error [Recovered/Resolved]
  - Antimitochondrial antibody positive [Unknown]
  - Memory impairment [Not Recovered/Not Resolved]
  - Road traffic accident [Recovered/Resolved]
  - Primary biliary cholangitis [Unknown]
  - Red blood cell count decreased [Unknown]
  - Concussion [Unknown]
  - Aspartate aminotransferase increased [Unknown]
  - Liver function test increased [Unknown]
  - Pruritus [Unknown]

NARRATIVE: CASE EVENT DATE: 20191016
